FAERS Safety Report 14462407 (Version 2)
Quarter: 2018Q1

REPORT INFORMATION
  Report Type: Report from Study
  Country: AU (occurrence: AU)
  Receive Date: 20180130
  Receipt Date: 20180206
  Transmission Date: 20180509
  Serious: Yes (Death, Other)
  Sender: FDA-Public Use
  Company Number: AU-ACTELION-A-US2018-166764

PATIENT

DRUGS (1)
  1. VENTAVIS [Suspect]
     Active Substance: ILOPROST
     Indication: PULMONARY HYPERTENSION
     Dosage: 5 MCG, 9/D
     Route: 055

REACTIONS (3)
  - Ovarian cancer [Unknown]
  - Pulmonary arterial hypertension [Fatal]
  - Renal failure [Unknown]
